FAERS Safety Report 26204256 (Version 1)
Quarter: 2025Q4

REPORT INFORMATION
  Report Type: Report from Study
  Country: US (occurrence: US)
  Receive Date: 20251226
  Receipt Date: 20251226
  Transmission Date: 20260117
  Serious: Yes (Other)
  Sender: GILEAD
  Company Number: US-GILEAD-2025-0742095

PATIENT
  Sex: Male

DRUGS (1)
  1. AMBRISENTAN [Suspect]
     Active Substance: AMBRISENTAN
     Indication: Pulmonary hypertension
     Dosage: LETAIRIS 10MG ORALLY DAILY
     Route: 048
     Dates: start: 20251212

REACTIONS (4)
  - Central venous catheterisation [Unknown]
  - Catheter site vesicles [Unknown]
  - Catheter site irritation [Unknown]
  - Pain in extremity [Not Recovered/Not Resolved]
